FAERS Safety Report 5528265-3 (Version None)
Quarter: 2007Q4

REPORT INFORMATION
  Report Type: 
  Country: None (occurrence: None)
  Receive Date: 20071128
  Receipt Date: 20071116
  Transmission Date: 20080405
  Serious: Yes (Hospitalization)
  Sender: FDA-Public Use
  Company Number: JP-PFIZER INC-2007097542

PATIENT
  Age: 46 Year
  Sex: Female

DRUGS (4)
  1. ZOLOFT [Suspect]
     Indication: DEPRESSIVE SYMPTOM
     Dosage: DAILY DOSE:50MG
     Route: 048
  2. DOGMATYL [Concomitant]
     Indication: NEUROSIS
  3. TETRAMIDE [Concomitant]
     Route: 048
  4. RIZE [Concomitant]
     Route: 048

REACTIONS (2)
  - ORAL INTAKE REDUCED [None]
  - SEROTONIN SYNDROME [None]
